FAERS Safety Report 8583409 (Version 2)
Quarter: 2013Q2

REPORT INFORMATION
  Report Type: Spontaneous
  Country: US (occurrence: US)
  Receive Date: 20120529
  Receipt Date: 20130619
  Transmission Date: 20140414
  Serious: Yes (Hospitalization)
  Sender: FDA-Public Use
  Company Number: US-BAYER-2012-051552

PATIENT
  Age: 30 Year
  Sex: Female

DRUGS (11)
  1. YAZ [Suspect]
     Dosage: UNK
     Dates: start: 20090120, end: 20100605
  2. GIANVI [Suspect]
     Dosage: UNK
     Dates: start: 20100605, end: 20110520
  3. CITALOPRAM [Concomitant]
  4. ATENOLOL [Concomitant]
  5. SPIRONOLACTONE [Concomitant]
     Dosage: 50 MG TABLET EVERY DAY
     Route: 048
  6. CIPRO [Concomitant]
     Indication: URINARY TRACT INFECTION
  7. PYRIDIUM [Concomitant]
  8. COLACE [Concomitant]
  9. DILAUDID [Concomitant]
  10. VICODIN [Concomitant]
  11. PHENERGAN [Concomitant]

REACTIONS (8)
  - Pelvic venous thrombosis [None]
  - Vena cava thrombosis [None]
  - Injury [None]
  - Pain [None]
  - Emotional distress [None]
  - Fear of death [None]
  - Nervousness [None]
  - Depression [None]
